FAERS Safety Report 8623152-6 (Version None)
Quarter: 2012Q3

REPORT INFORMATION
  Report Type: 
  Country: None (occurrence: None)
  Receive Date: 20120827
  Receipt Date: 20120815
  Transmission Date: 20120928
  Serious: Yes (Other)
  Sender: FDA-Public Use
  Company Number: US-BAYER-2012-039231

PATIENT
  Age: 41 Year
  Sex: Female

DRUGS (4)
  1. YAZ [Suspect]
     Indication: CONTRACEPTION
     Dosage: UNK
     Dates: start: 20050101, end: 20070101
  2. YASMIN [Suspect]
     Indication: CONTRACEPTION
     Dosage: UNK
     Dates: start: 20050101, end: 20070101
  3. DIOVAN [Concomitant]
     Dosage: 80 AND 12.5
     Route: 048
     Dates: start: 20061218, end: 20120130
  4. CEPHALEXIN [Concomitant]
     Dosage: 500 MG, UNK
     Dates: start: 20071126

REACTIONS (6)
  - ERYTHEMA [None]
  - SWELLING [None]
  - INJURY [None]
  - SKIN DISCOLOURATION [None]
  - DEEP VEIN THROMBOSIS [None]
  - PAIN [None]
